FAERS Safety Report 10215373 (Version 1)
Quarter: 2014Q2

REPORT INFORMATION
  Report Type: Spontaneous
  Country: US (occurrence: US)
  Receive Date: 20140604
  Receipt Date: 20140604
  Transmission Date: 20141212
  Serious: No
  Sender: FDA-Public Use
  Company Number: US-009507513-1405USA014404

PATIENT
  Sex: Male

DRUGS (1)
  1. PEGINTRON [Suspect]
     Dosage: UNK

REACTIONS (4)
  - Mental disorder [Unknown]
  - Drug intolerance [Unknown]
  - Abnormal behaviour [Unknown]
  - Incorrect dose administered [Unknown]
